FAERS Safety Report 11057822 (Version 1)
Quarter: 2015Q2

REPORT INFORMATION
  Report Type: Spontaneous
  Country: US (occurrence: US)
  Receive Date: 20150423
  Receipt Date: 20150423
  Transmission Date: 20150821
  Serious: Yes (Other)
  Sender: FDA-Public Use
  Company Number: US-ROCHE-1566545

PATIENT
  Sex: Male

DRUGS (1)
  1. GAZYVA [Suspect]
     Active Substance: OBINUTUZUMAB
     Indication: CHRONIC LYMPHOCYTIC LEUKAEMIA
     Dosage: STANDARD DOSE
     Route: 065

REACTIONS (4)
  - Hypertension [Unknown]
  - Cardiac disorder [Unknown]
  - Pyrexia [Recovered/Resolved]
  - Atrial fibrillation [Unknown]
